FAERS Safety Report 7405753-6 (Version None)
Quarter: 2011Q2

REPORT INFORMATION
  Report Type: 
  Country: None (occurrence: None)
  Receive Date: 20110411
  Receipt Date: 20110331
  Transmission Date: 20111010
  Serious: Yes (Death)
  Sender: FDA-Public Use
  Company Number: JP-PFIZER INC-2011077241

PATIENT
  Age: 69 Year
  Sex: Male

DRUGS (2)
  1. CAMPTOSAR [Suspect]
     Indication: SMALL CELL LUNG CANCER STAGE UNSPECIFIED
     Dosage: 70 MG/BODY
     Route: 041
     Dates: start: 20110326, end: 20110326
  2. CARBOPLATIN [Suspect]
     Indication: SMALL CELL LUNG CANCER STAGE UNSPECIFIED
     Dosage: 350 MG/BODY
     Route: 041
     Dates: start: 20110326, end: 20110326

REACTIONS (3)
  - SEPSIS [None]
  - NEUTROPENIA [None]
  - LEUKOPENIA [None]
